FAERS Safety Report 9442908 (Version 1)
Quarter: 2013Q3

REPORT INFORMATION
  Report Type: Spontaneous
  Country: US (occurrence: US)
  Receive Date: 20130806
  Receipt Date: 20130806
  Transmission Date: 20140515
  Serious: No
  Sender: FDA-Public Use
  Company Number: US-JNJFOC-20130714670

PATIENT
  Sex: Female
  Weight: 50.8 kg

DRUGS (7)
  1. DURAGESIC [Suspect]
     Indication: PAIN
     Dosage: 87.5 MCG/PATCH-75 UG/HR   12.5 UG/HR 1 IN 48 HOURS
     Route: 062
  2. DURAGESIC [Suspect]
     Indication: PAIN
     Dosage: 87.5 MCG/PATCH-75 UG/HR + 12.5 UG/HR 1 IN 72 HOURS
     Route: 062
  3. DURAGESIC [Suspect]
     Indication: PAIN
     Route: 062
  4. DURAGESIC [Suspect]
     Indication: PAIN
     Route: 062
  5. DURAGESIC [Suspect]
     Indication: PAIN
     Route: 062
  6. DURAGESIC [Suspect]
     Indication: PAIN
     Route: 062
     Dates: start: 2010
  7. OXYCODONE [Concomitant]
     Indication: BREAKTHROUGH PAIN
     Route: 048

REACTIONS (13)
  - Drug withdrawal syndrome [Unknown]
  - Product quality issue [Unknown]
  - Product quality issue [Unknown]
  - Depression [Unknown]
  - Drug ineffective [Not Recovered/Not Resolved]
  - Wrong technique in drug usage process [Unknown]
  - Wrong technique in drug usage process [Not Recovered/Not Resolved]
  - Product quality issue [Unknown]
  - Drug effect increased [Not Recovered/Not Resolved]
  - Decreased appetite [Unknown]
  - Abnormal loss of weight [Unknown]
  - Product adhesion issue [Unknown]
  - Paraesthesia [Unknown]
